FAERS Safety Report 6468038-0 (Version None)
Quarter: 2009Q4

REPORT INFORMATION
  Report Type: 
  Country: None (occurrence: None)
  Receive Date: 20091119
  Receipt Date: 20091015
  Transmission Date: 20100525
  Serious: Yes (Hospitalization)
  Sender: FDA-Public Use
  Company Number: WAES0910USA01895

PATIENT
  Age: 71 Year
  Sex: Female
  Weight: 118.3888 kg

DRUGS (16)
  1. JANUVIA [Suspect]
     Dates: start: 20071011, end: 20081201
  2. BETOPTIC [Concomitant]
  3. CELEXA [Concomitant]
  4. DUONEB [Concomitant]
  5. IMDUR [Concomitant]
  6. PULMICORT [Concomitant]
  7. XALATAN [Concomitant]
  8. DILTIAZEM HYDROCHLORIDE [Concomitant]
  9. GLIPIZIDE [Concomitant]
  10. HYDROCHLOROTHIAZIDE [Concomitant]
  11. LEVOTHYROXINE SODIUM [Concomitant]
  12. LISINOPRIL [Concomitant]
  13. LORAZEPAM [Concomitant]
  14. LOVASTATIN [Concomitant]
  15. METOCLOPRAMIDE [Concomitant]
  16. NITROGLYCERIN [Concomitant]

REACTIONS (1)
  - PANCREATITIS [None]
